FAERS Safety Report 16076252 (Version 3)
Quarter: 2019Q3

REPORT INFORMATION
  Report Type: Spontaneous
  Country: US (occurrence: US)
  Receive Date: 20190315
  Receipt Date: 20190718
  Transmission Date: 20191004
  Serious: Yes (Other)
  Sender: FDA-Public Use
  Company Number: US-PFIZER INC-2019110259

PATIENT
  Age: 20 Year
  Sex: Female
  Weight: 54.42 kg

DRUGS (2)
  1. XELJANZ [Suspect]
     Active Substance: TOFACITINIB CITRATE
     Indication: RHEUMATOID ARTHRITIS
     Dosage: 5 MG, 2X/DAY (TAKE 1 TABLET TWICE A DAY)
     Route: 048
     Dates: start: 20190206
  2. XELJANZ [Suspect]
     Active Substance: TOFACITINIB CITRATE
     Indication: ARTHRITIS
     Dosage: 5 MG, TWICE DAILY
     Dates: start: 20190425

REACTIONS (4)
  - Energy increased [Recovered/Resolved]
  - Poor quality sleep [Recovered/Resolved]
  - Stress fracture [Recovered/Resolved]
  - Foot fracture [Recovered/Resolved]

NARRATIVE: CASE EVENT DATE: 201904
